FAERS Safety Report 11590119 (Version 10)
Quarter: 2016Q2

REPORT INFORMATION
  Report Type: Report from Study
  Country: DE (occurrence: DE)
  Receive Date: 20151002
  Receipt Date: 20160622
  Transmission Date: 20160815
  Serious: Yes (Hospitalization)
  Sender: FDA-Public Use
  Company Number: DE-PFIZER INC-2015228644

PATIENT
  Age: 73 Year
  Sex: Male
  Weight: 91 kg

DRUGS (20)
  1. ARANESP [Concomitant]
     Active Substance: DARBEPOETIN ALFA
     Indication: ANAEMIA
     Dosage: 50 ?G, WEEKLY
     Route: 058
     Dates: start: 201404
  2. RAMIPRIL. [Concomitant]
     Active Substance: RAMIPRIL
     Indication: HYPERTENSION
     Dosage: 5 MG, 1X/DAY (MORNING)
     Route: 048
     Dates: start: 201404
  3. ALLOPURINOL. [Concomitant]
     Active Substance: ALLOPURINOL
     Indication: HYPERURICAEMIA
     Dosage: 300 MG, UNK
     Route: 048
     Dates: start: 201404
  4. FERRO-SANOL DUODENAL [Concomitant]
     Active Substance: FERROUS GLYCINE SULFATE
     Indication: ANAEMIA
     Dosage: 100 MG, 1X/DAY
     Route: 048
     Dates: start: 20150512
  5. BELOC-ZOK [Concomitant]
     Active Substance: METOPROLOL SUCCINATE
     Indication: HYPERTENSION
     Dosage: 95 MG, (1/2-0-1)
     Route: 048
     Dates: start: 20150701
  6. FRAXIPARINE /01437701/ [Concomitant]
     Active Substance: NADROPARIN CALCIUM
     Indication: THROMBOSIS PROPHYLAXIS
     Dosage: 0.4 ML, 2X/DAY
     Route: 058
     Dates: start: 20150823
  7. BOSUTINIB [Suspect]
     Active Substance: BOSUTINIB
     Dosage: 400 MG, UNK
     Route: 048
     Dates: start: 20150831, end: 20150907
  8. AMLODIPINE [Concomitant]
     Active Substance: AMLODIPINE BESYLATE
     Indication: HYPERTENSION
     Dosage: 0.5 DF, 2X/DAY (MORNING, EVENING)
     Route: 048
     Dates: start: 201404
  9. DOXAZOSIN [Concomitant]
     Active Substance: DOXAZOSIN\DOXAZOSIN MESYLATE
     Indication: BENIGN PROSTATIC HYPERPLASIA
     Dosage: 4 MG, 2X/DAY (MORNING, EVENING)
     Route: 048
     Dates: start: 201404
  10. PANTOPRAZOLE [Concomitant]
     Active Substance: PANTOPRAZOLE SODIUM
     Indication: PROPHYLAXIS
     Dosage: 40 MG, 1X/DAY (MORNING)
     Route: 048
     Dates: start: 201404
  11. TORASEMIDE [Concomitant]
     Active Substance: TORSEMIDE
     Indication: HYPERTENSION
     Dosage: 20 MG, 1X/DAY (MORNING)
     Route: 048
     Dates: start: 201404
  12. BOSUTINIB [Suspect]
     Active Substance: BOSUTINIB
     Indication: CHRONIC MYELOID LEUKAEMIA
     Dosage: 500 MG, UNK
     Route: 048
     Dates: start: 20150417, end: 20150625
  13. BOSUTINIB [Suspect]
     Active Substance: BOSUTINIB
     Dosage: 500 UNK, UNK
     Route: 048
     Dates: start: 20150701, end: 20150822
  14. BOSUTINIB [Suspect]
     Active Substance: BOSUTINIB
     Dosage: 500 MG, UNK
     Route: 048
     Dates: start: 20150908, end: 20150909
  15. BOSUTINIB [Suspect]
     Active Substance: BOSUTINIB
     Dosage: 300 MG, UNK
     Route: 048
     Dates: start: 20150910
  16. FORMOTEROL [Concomitant]
     Active Substance: FORMOTEROL
     Indication: CHRONIC OBSTRUCTIVE PULMONARY DISEASE
     Dosage: UNK, AS NEEDED
     Route: 048
     Dates: start: 201404
  17. NOVAMINSULFON [Concomitant]
     Active Substance: METAMIZOLE
     Indication: PAIN
     Dosage: 40 GTT, 2X/DAY
     Route: 048
     Dates: start: 20150609
  18. BOSUTINIB [Suspect]
     Active Substance: BOSUTINIB
     Dosage: 300 MG, UNK
     Route: 048
     Dates: start: 20150823
  19. METAMIZOLE [Concomitant]
     Active Substance: METAMIZOLE
     Indication: PAIN
     Dosage: UNK, AS NEEDED
     Route: 048
     Dates: start: 201404, end: 20150608
  20. ARCOXIA [Concomitant]
     Active Substance: ETORICOXIB
     Indication: PAIN
     Dosage: 60 MG, 1X/DAY
     Dates: start: 20150505

REACTIONS (3)
  - Urinary tract infection [Recovered/Resolved with Sequelae]
  - Acute kidney injury [Recovered/Resolved with Sequelae]
  - Acute kidney injury [Recovered/Resolved with Sequelae]

NARRATIVE: CASE EVENT DATE: 20150625
